FAERS Safety Report 8187686-3 (Version None)
Quarter: 2012Q1

REPORT INFORMATION
  Report Type: 
  Country: None (occurrence: None)
  Receive Date: 20120306
  Receipt Date: 20120301
  Transmission Date: 20120608
  Serious: Yes (Other)
  Sender: FDA-Public Use
  Company Number: US-ABBOTT-12P-163-0909770-00

PATIENT
  Sex: Female
  Weight: 43.584 kg

DRUGS (6)
  1. HUMIRA [Suspect]
     Dates: start: 20050101, end: 20110101
  2. HUMIRA [Suspect]
     Dates: start: 20110101, end: 20111101
  3. HUMIRA [Suspect]
     Indication: CROHN'S DISEASE
     Dates: start: 20120202, end: 20120202
  4. HUMIRA [Suspect]
     Route: 058
     Dates: start: 20120216
  5. CIPRO [Concomitant]
     Indication: PROPHYLAXIS
  6. CIPRO [Concomitant]
     Indication: CROHN'S DISEASE

REACTIONS (5)
  - LUPUS-LIKE SYNDROME [None]
  - JOINT SWELLING [None]
  - ACTIVITIES OF DAILY LIVING IMPAIRED [None]
  - PAIN [None]
  - SWELLING [None]
